FAERS Safety Report 13034097 (Version 1)
Quarter: 2016Q4

REPORT INFORMATION
  Report Type: Spontaneous
  Country: US (occurrence: US)
  Receive Date: 20161215
  Receipt Date: 20161215
  Transmission Date: 20170207
  Serious: No
  Sender: FDA-Public Use
  Company Number: None

PATIENT
  Age: 11 Year
  Sex: Female

DRUGS (1)
  1. NORDITROPIN [Suspect]
     Active Substance: SOMATROPIN
     Dosage: DOSE - NORDITROPIN FLXXPRO
     Route: 058

REACTIONS (1)
  - Insomnia [None]

NARRATIVE: CASE EVENT DATE: 20161213
